FAERS Safety Report 4291872-2 (Version None)
Quarter: 2004Q1

REPORT INFORMATION
  Report Type: 
  Country: None (occurrence: None)
  Receive Date: 20040211
  Receipt Date: 20030815
  Transmission Date: 20041129
  Serious: No
  Sender: FDA-Public Use
  Company Number: US-GLAXOSMITHKLINE-A0422189A

PATIENT
  Age: 31 Year
  Sex: Female

DRUGS (5)
  1. IMITREX [Suspect]
     Indication: MIGRAINE
     Dosage: 6MG SINGLE DOSE
     Route: 058
     Dates: start: 20030813, end: 20030813
  2. PHENERGAN [Concomitant]
  3. AMERGE [Concomitant]
  4. NUBAIN [Concomitant]
  5. WEIGHT LOSS MEDICATION [Concomitant]

REACTIONS (9)
  - BLOOD PRESSURE INCREASED [None]
  - CHEST DISCOMFORT [None]
  - DIZZINESS [None]
  - FATIGUE [None]
  - NAUSEA [None]
  - PALPITATIONS [None]
  - PYREXIA [None]
  - THROAT TIGHTNESS [None]
  - WHEEZING [None]
